FAERS Safety Report 4897586-X (Version None)
Quarter: 2006Q2

REPORT INFORMATION
  Report Type: 
  Country: None (occurrence: None)
  Receive Date: 20060130
  Receipt Date: 20060130
  Transmission Date: 20061013
  Serious: Yes (Hospitalization)
  Sender: FDA-Public Use
  Company Number: None

PATIENT
  Age: 75 Year
  Sex: Male
  Weight: 72 kg

DRUGS (2)
  1. BUPIVACAINE [Suspect]
     Indication: ANAESTHESIA
     Dosage: 6U/H EPIDURAL
     Route: 008
     Dates: start: 20051108
  2. BUPIVACAINE [Suspect]
     Indication: AORTIC ANEURYSM REPAIR
     Dosage: 6U/H EPIDURAL
     Route: 008
     Dates: start: 20051108

REACTIONS (1)
  - HYPOTENSION [None]
